FAERS Safety Report 6597685-0 (Version None)
Quarter: 2010Q1

REPORT INFORMATION
  Report Type: 
  Country: None (occurrence: None)
  Receive Date: 20100216
  Receipt Date: 20100202
  Transmission Date: 20100710
  Serious: Yes (Other)
  Sender: FDA-Public Use
  Company Number: 2010AL000828

PATIENT
  Age: 46 Year
  Sex: Female

DRUGS (1)
  1. FERROUS SUL ELX [Suspect]
     Indication: ANAEMIA

REACTIONS (2)
  - ENTEROCOLITIS [None]
  - INTESTINAL HAEMORRHAGE [None]
